FAERS Safety Report 24257941 (Version 2)
Quarter: 2024Q4

REPORT INFORMATION
  Report Type: Other
  Country: US (occurrence: US)
  Receive Date: 20240828
  Receipt Date: 20241008
  Transmission Date: 20250115
  Serious: Yes (Other)
  Sender: NAVINTA LLC
  Company Number: US-Navinta LLC-000510

PATIENT
  Age: 52 Year
  Sex: Male

DRUGS (1)
  1. NICARDIPINE [Suspect]
     Active Substance: NICARDIPINE
     Indication: Blood pressure increased
     Dosage: 25 MG/10 ML

REACTIONS (2)
  - Anaphylactoid reaction [Recovered/Resolved]
  - Blood pressure increased [Unknown]
